FAERS Safety Report 5980102-9 (Version None)
Quarter: 2008Q4

REPORT INFORMATION
  Report Type: 
  Country: None (occurrence: None)
  Receive Date: 20081202
  Receipt Date: 20081202
  Transmission Date: 20090506
  Serious: Yes (Other)
  Sender: FDA-Public Use
  Company Number: None

PATIENT
  Age: 78 Year
  Sex: Female
  Weight: 50 kg

DRUGS (13)
  1. TRANEXAMIC ACID CYKLOKAPRON PFIZER [Suspect]
     Indication: PROCOAGULANT THERAPY
     Dosage: 30MG/KG IV X 1 IV BOLUS
     Route: 040
     Dates: start: 20081029, end: 20081029
  2. TRANEXAMIC ACID CYKLOKAPRON PFIZER [Suspect]
     Dosage: 16MG/KG/HR X 3HRS IV DRIP
     Route: 041
  3. INHALED ANESTHESIA -? [Concomitant]
  4. SEVOFLURANE [Concomitant]
  5. VECURONIUM BROMIDE [Concomitant]
  6. FENTANYL-100 [Concomitant]
  7. MIDAZOLAM HCL [Concomitant]
  8. CEFAZOLIN [Concomitant]
  9. EPHEDRINE HCL 1PC SOL [Concomitant]
  10. HEPARIN [Concomitant]
  11. PROTAMINE SULFATE [Concomitant]
  12. METHYLPRED [Concomitant]
  13. INSULIN [Concomitant]

REACTIONS (7)
  - CONVULSION [None]
  - DRUG TOXICITY [None]
  - ELECTROENCEPHALOGRAM ABNORMAL [None]
  - HYPOXIC ENCEPHALOPATHY [None]
  - METABOLIC DISORDER [None]
  - NERVOUS SYSTEM DISORDER [None]
  - UNRESPONSIVE TO STIMULI [None]
